FAERS Safety Report 10549536 (Version 1)
Quarter: 2014Q4

REPORT INFORMATION
  Report Type: Spontaneous
  Country: US (occurrence: None)
  Receive Date: 20141020
  Receipt Date: 20141020
  Transmission Date: 20150529
  Serious: No
  Sender: FDA-Public Use
  Company Number: AEGR000594

PATIENT
  Age: 53 Year
  Sex: Female
  Weight: 64.4 kg

DRUGS (17)
  1. DIOVAN [Concomitant]
     Active Substance: VALSARTAN
  2. VITAMIN C [Concomitant]
     Active Substance: ASCORBIC ACID
  3. FLAXSEED [Concomitant]
     Active Substance: FLAX SEED
  4. FUROSEMIDE. [Concomitant]
     Active Substance: FUROSEMIDE
  5. SODIUM BICARBONATE. [Concomitant]
     Active Substance: SODIUM BICARBONATE
  6. VITAMIN E (TOCOPHERYL ACETATE) [Concomitant]
  7. EVISTA [Concomitant]
     Active Substance: RALOXIFENE HYDROCHLORIDE
  8. LEXAPRO [Concomitant]
     Active Substance: ESCITALOPRAM OXALATE
  9. LIPITOR [Concomitant]
     Active Substance: ATORVASTATIN CALCIUM
  10. SPIRONOLACTONE. [Concomitant]
     Active Substance: SPIRONOLACTONE
  11. VITAMIN B COMPLEX [Concomitant]
     Active Substance: CYANOCOBALAMIN\DEXPANTHENOL\NIACINAMIDE\PYRIDOXINE HYDROCHLORIDE\RIBOFLAVIN 5^-PHOSPHATE SODIUM\THIAMINE HYDROCHLORIDE\VITAMIN B COMPLEX
  12. JUXTAPID [Suspect]
     Active Substance: LOMITAPIDE MESYLATE
     Indication: PRODUCT USED FOR UNKNOWN INDICATION
     Route: 048
     Dates: start: 201311
  13. ZETIA [Concomitant]
     Active Substance: EZETIMIBE
  14. ALLOPURINOL. [Concomitant]
     Active Substance: ALLOPURINOL
  15. CALCITRIOL. [Concomitant]
     Active Substance: CALCITRIOL
  16. FISH OIL [Concomitant]
     Active Substance: FISH OIL
  17. ASPIRIN (ACETYLSALICYLIC ACID) [Concomitant]
     Active Substance: ASPIRIN

REACTIONS (2)
  - Gastrooesophageal reflux disease [None]
  - Product used for unknown indication [None]

NARRATIVE: CASE EVENT DATE: 201311
